FAERS Safety Report 25998187 (Version 1)
Quarter: 2025Q4

REPORT INFORMATION
  Report Type: Report from Study
  Country: EU (occurrence: EU)
  Receive Date: 20251105
  Receipt Date: 20251105
  Transmission Date: 20260118
  Serious: Yes (Other)
  Sender: ROCHE
  Company Number: EU-ROCHE-10000189739

PATIENT
  Age: 85 Year
  Sex: Female

DRUGS (5)
  1. FARICIMAB [Suspect]
     Active Substance: FARICIMAB
     Indication: Neovascular age-related macular degeneration
     Dosage: TOTAL VOLUME PRIOR AE: 0.05 ML??MOST RECENT DOSE OF STUDY DRUG?PRIOR TO AE: 16-JAN-2025
     Route: 050
     Dates: start: 20231211
  2. SIMVASTATIN [Concomitant]
     Active Substance: SIMVASTATIN
  3. SIMVASTATIN [Concomitant]
     Active Substance: SIMVASTATIN
  4. XARELTO [Concomitant]
     Active Substance: RIVAROXABAN
  5. XARELTO [Concomitant]
     Active Substance: RIVAROXABAN

REACTIONS (2)
  - Macular degeneration [Not Recovered/Not Resolved]
  - Subretinal fibrosis [Not Recovered/Not Resolved]

NARRATIVE: CASE EVENT DATE: 20250116
